FAERS Safety Report 5203398-X (Version None)
Quarter: 2007Q1

REPORT INFORMATION
  Report Type: 
  Country: None (occurrence: None)
  Receive Date: 20070105
  Receipt Date: 20061226
  Transmission Date: 20070707
  Serious: Yes (Other)
  Sender: FDA-Public Use
  Company Number: 2006-03306

PATIENT
  Age: 71 Year
  Sex: Male

DRUGS (2)
  1. VELCADE [Suspect]
     Indication: MULTIPLE MYELOMA
     Dosage: 1.40 MG/M2, INTRAVENOUS
     Route: 042
     Dates: start: 20061204, end: 20061214
  2. GAMIMUNE [Suspect]
     Indication: DRUG USE FOR UNKNOWN INDICATION
     Dosage: 5.00 G
     Dates: start: 20061209, end: 20061209

REACTIONS (10)
  - ASPERGILLOSIS [None]
  - BLOOD ALKALINE PHOSPHATASE DECREASED [None]
  - BLOOD LACTATE DEHYDROGENASE INCREASED [None]
  - BLOOD UREA INCREASED [None]
  - BLOOD URIC ACID INCREASED [None]
  - FEBRILE NEUTROPENIA [None]
  - HYPERKALAEMIA [None]
  - HYPOCALCAEMIA [None]
  - PLEURAL EFFUSION [None]
  - PROTEIN TOTAL INCREASED [None]
